FAERS Safety Report 9341042 (Version 2)
Quarter: 2013Q3

REPORT INFORMATION
  Report Type: Report from Study
  Country: US (occurrence: US)
  Receive Date: 20130610
  Receipt Date: 20130717
  Transmission Date: 20140515
  Serious: Yes (Life-Threatening, Other)
  Sender: FDA-Public Use
  Company Number: US-ASTRAZENECA-2013SE18452

PATIENT
  Age: 47 Year
  Sex: Male
  Weight: 82.1 kg

DRUGS (30)
  1. SEROQUEL [Suspect]
     Indication: SLEEP DISORDER
     Route: 048
     Dates: start: 1997
  2. SEROQUEL [Suspect]
     Indication: CONDITION AGGRAVATED
     Route: 048
     Dates: start: 1997
  3. SEROQUEL [Suspect]
     Indication: MENTAL DISORDER
     Route: 048
     Dates: start: 1997
  4. SEROQUEL [Suspect]
     Indication: SLEEP DISORDER
     Route: 048
     Dates: start: 1997, end: 2002
  5. SEROQUEL [Suspect]
     Indication: CONDITION AGGRAVATED
     Route: 048
     Dates: start: 1997, end: 2002
  6. SEROQUEL [Suspect]
     Indication: MENTAL DISORDER
     Route: 048
     Dates: start: 1997, end: 2002
  7. SEROQUEL [Suspect]
     Indication: SLEEP DISORDER
     Route: 048
     Dates: start: 201212, end: 201301
  8. SEROQUEL [Suspect]
     Indication: CONDITION AGGRAVATED
     Route: 048
     Dates: start: 201212, end: 201301
  9. SEROQUEL [Suspect]
     Indication: MENTAL DISORDER
     Route: 048
     Dates: start: 201212, end: 201301
  10. SEROQUEL [Suspect]
     Indication: SLEEP DISORDER
     Dosage: 100 MG , AT NIGHT GENERIC
     Route: 048
     Dates: start: 201301
  11. SEROQUEL [Suspect]
     Indication: CONDITION AGGRAVATED
     Dosage: 100 MG , AT NIGHT GENERIC
     Route: 048
     Dates: start: 201301
  12. SEROQUEL [Suspect]
     Indication: MENTAL DISORDER
     Dosage: 100 MG , AT NIGHT GENERIC
     Route: 048
     Dates: start: 201301
  13. SEROQUEL [Suspect]
     Indication: SLEEP DISORDER
     Route: 048
     Dates: start: 1997
  14. SEROQUEL [Suspect]
     Indication: CONDITION AGGRAVATED
     Route: 048
     Dates: start: 1997
  15. SEROQUEL [Suspect]
     Indication: MENTAL DISORDER
     Route: 048
     Dates: start: 1997
  16. PSYCHOTROPIC MEDICATIONS [Suspect]
     Route: 065
  17. HYDROXYZINE [Concomitant]
     Indication: CONDITION AGGRAVATED
     Route: 048
     Dates: start: 201212
  18. HYDROXYZINE [Concomitant]
     Indication: CONDITION AGGRAVATED
     Dosage: 25 MG 3-4 TIMES A DAY
     Route: 048
  19. DEPAKOTE [Concomitant]
     Indication: CONVULSION
     Route: 048
  20. DEPAKOTE [Concomitant]
     Indication: CONVULSION
     Dosage: 750 MG IN MORNING AND 500 MG AT NIGHT DAILY
     Route: 048
  21. OXYCODONE [Concomitant]
     Indication: PAIN
     Dosage: 10MG QID PRN
     Route: 048
     Dates: start: 201212
  22. DIVALPROEX [Concomitant]
     Indication: CONVULSION
     Dates: start: 201212
  23. ZYPREXA [Concomitant]
     Indication: CONDITION AGGRAVATED
     Dosage: 5 MG 3-4 TIMES A DAY
     Dates: start: 201212
  24. ZYPREXA [Concomitant]
     Indication: ANXIETY
     Dosage: 5 MG 3-4 TIMES A DAY
     Dates: start: 201212
  25. VISTARIL [Concomitant]
     Indication: ANXIETY
     Dosage: 25 MG 2-3 TIMES A DAY
     Dates: start: 201212
  26. VISTARIL [Concomitant]
     Indication: CONDITION AGGRAVATED
     Dosage: 25 MG 2-3 TIMES A DAY
     Dates: start: 201212
  27. VISTARIL [Concomitant]
     Indication: ANXIETY
     Dosage: 25 MG 3-4 TIMES A DAY
  28. VISTARIL [Concomitant]
     Indication: CONDITION AGGRAVATED
     Dosage: 25 MG 3-4 TIMES A DAY
  29. TOPAMAX [Concomitant]
     Indication: CONVULSION
     Dates: start: 20130521
  30. TOPAMAX [Concomitant]
     Indication: CONVULSION
     Dates: start: 201306

REACTIONS (19)
  - Convulsion [Unknown]
  - Head injury [Unknown]
  - Coma [Unknown]
  - Subdural haematoma [Unknown]
  - Amnesia [Unknown]
  - Ear haemorrhage [Unknown]
  - Weight increased [Unknown]
  - Pneumonia [Not Recovered/Not Resolved]
  - Disorientation [Unknown]
  - Dysphemia [Not Recovered/Not Resolved]
  - Confusional state [Not Recovered/Not Resolved]
  - Activities of daily living impaired [Unknown]
  - Pain [Unknown]
  - Pain [Unknown]
  - Mental impairment [Unknown]
  - Agitation [Unknown]
  - Therapeutic response unexpected [Unknown]
  - Drug dose omission [Unknown]
  - Off label use [Unknown]
